FAERS Safety Report 6370752-2 (Version None)
Quarter: 2009Q3

REPORT INFORMATION
  Report Type: 
  Country: None (occurrence: None)
  Receive Date: 20090923
  Receipt Date: 20071203
  Transmission Date: 20100115
  Serious: Yes (Other)
  Sender: FDA-Public Use
  Company Number: US-ASTRAZENECA-2006UW27462

PATIENT
  Age: 7339 Day
  Sex: Female
  Weight: 81.6 kg

DRUGS (14)
  1. SEROQUEL [Suspect]
     Indication: SCHIZOPHRENIA
     Route: 048
     Dates: start: 20000301, end: 20010101
  2. SEROQUEL [Suspect]
     Indication: AFFECTIVE DISORDER
     Route: 048
     Dates: start: 20000301, end: 20010101
  3. SEROQUEL [Suspect]
     Indication: DEPRESSION
     Route: 048
     Dates: start: 20000301, end: 20010101
  4. SEROQUEL [Suspect]
     Route: 048
     Dates: start: 20000928
  5. SEROQUEL [Suspect]
     Route: 048
     Dates: start: 20000928
  6. SEROQUEL [Suspect]
     Route: 048
     Dates: start: 20000928
  7. GEODON [Concomitant]
  8. RISPERDAL [Concomitant]
     Dosage: 1- 3 MG
     Route: 048
  9. ZYPREXA [Concomitant]
  10. EFFEXOR [Concomitant]
     Dosage: 75 - 150 MG
     Route: 048
  11. CARBAMAZEPINE [Concomitant]
  12. NALTREXONE HYDROCHLORIDE [Concomitant]
     Route: 048
  13. DEPAKOTE [Concomitant]
  14. TEGRETOL [Concomitant]
     Route: 048

REACTIONS (7)
  - ABDOMINAL PAIN UPPER [None]
  - DIABETES MELLITUS [None]
  - GASTRITIS [None]
  - MUSCLE STRAIN [None]
  - OTITIS EXTERNA [None]
  - OTITIS MEDIA ACUTE [None]
  - TARDIVE DYSKINESIA [None]
